FAERS Safety Report 17070256 (Version 1)
Quarter: 2019Q4

REPORT INFORMATION
  Report Type: Spontaneous
  Country: US (occurrence: US)
  Receive Date: 20191125
  Receipt Date: 20191125
  Transmission Date: 20200122
  Serious: No
  Sender: FDA-Public Use
  Company Number: US-HORIZON-ACT-0320-2019

PATIENT
  Age: 12 Year
  Sex: Male

DRUGS (6)
  1. ITRACONAZOLE. [Concomitant]
     Active Substance: ITRACONAZOLE
  2. CEFAZOLIN [Concomitant]
     Active Substance: CEFAZOLIN
  3. SMZ/TMP [Concomitant]
     Active Substance: SULFAMETHOXAZOLE\TRIMETHOPRIM
  4. ACTIMMUNE [Suspect]
     Active Substance: INTERFERON GAMMA-1B
     Indication: NEUTROPHIL FUNCTION DISORDER
     Dosage: 0.2 ML, SQ, TIW
     Route: 058
     Dates: start: 20131220
  5. SULFAMETHOX [Concomitant]
  6. SPORANOX [Concomitant]
     Active Substance: ITRACONAZOLE

REACTIONS (2)
  - Dizziness [Unknown]
  - Headache [Unknown]
